FAERS Safety Report 8510987 (Version 5)
Quarter: 2012Q4

REPORT INFORMATION
  Report Type: 
  Country: US (occurrence: US)
  Receive Date: 20120413
  Receipt Date: 20121010
  Transmission Date: 20130627
  Serious: Yes (Hospitalization, Other)
  Sender: FDA-Public Use
  Company Number: US-ROCHE-793632

PATIENT
  Age: 18 Year
  Sex: Male
  Weight: 40.86 kg

DRUGS (2)
  1. ACCUTANE [Suspect]
     Indication: PRODUCT USED FOR UNKNOWN INDICATION
     Route: 065
     Dates: start: 20081101, end: 20081201
  2. ACCUTANE [Suspect]
     Route: 065

REACTIONS (13)
  - Inflammatory bowel disease [Unknown]
  - Emotional distress [Unknown]
  - Crohn^s disease [Unknown]
  - Arthritis [Unknown]
  - Intestinal haemorrhage [Unknown]
  - Intestinal obstruction [Unknown]
  - Irritable bowel syndrome [Unknown]
  - Vasculitis [Unknown]
  - Weight decreased [Unknown]
  - Depression [Unknown]
  - Lip swelling [Unknown]
  - Dry skin [Unknown]
  - Large intestine polyp [Unknown]
